FAERS Safety Report 16439509 (Version 14)
Quarter: 2022Q4

REPORT INFORMATION
  Report Type: Spontaneous
  Country: US (occurrence: US)
  Receive Date: 20190617
  Receipt Date: 20221205
  Transmission Date: 20230113
  Serious: Yes (Other)
  Sender: FDA-Public Use
  Company Number: US-PFIZER INC-2019251641

PATIENT
  Age: 69 Year
  Sex: Female
  Weight: 65.77 kg

DRUGS (2)
  1. XELJANZ [Suspect]
     Active Substance: TOFACITINIB CITRATE
     Indication: Rheumatoid arthritis
     Dosage: 5 MG
  2. XELJANZ [Suspect]
     Active Substance: TOFACITINIB CITRATE
     Dosage: 5 MG, 2X/DAY
     Route: 048
     Dates: end: 20201120

REACTIONS (21)
  - Ankle fracture [Unknown]
  - Bone disorder [Unknown]
  - Shoulder operation [Unknown]
  - Shoulder arthroplasty [Unknown]
  - Gait disturbance [Unknown]
  - Eye disorder [Unknown]
  - Nasopharyngitis [Unknown]
  - Somnolence [Unknown]
  - Illness [Unknown]
  - Fall [Unknown]
  - Accident [Unknown]
  - Peripheral swelling [Unknown]
  - Stress [Unknown]
  - Weight decreased [Unknown]
  - Eating disorder [Unknown]
  - Frustration tolerance decreased [Unknown]
  - Pain [Unknown]
  - Movement disorder [Unknown]
  - Asthenia [Unknown]
  - Limb injury [Unknown]
  - Wrong product administered [Unknown]

NARRATIVE: CASE EVENT DATE: 20200101
